FAERS Safety Report 5574189-5 (Version None)
Quarter: 2007Q4

REPORT INFORMATION
  Report Type: 
  Country: None (occurrence: None)
  Receive Date: 20071130
  Receipt Date: 20070905
  Transmission Date: 20080405
  Serious: No
  Sender: FDA-Public Use
  Company Number: PHEH2007US11975

PATIENT
  Sex: Female

DRUGS (2)
  1. TEKTURNA [Suspect]
     Dosage: ORAL
     Route: 048
  2. PLAVIX [Suspect]
     Dosage: ORAL
     Route: 048

REACTIONS (1)
  - ALOPECIA [None]
